FAERS Safety Report 8613550-9 (Version None)
Quarter: 2012Q3

REPORT INFORMATION
  Report Type: 
  Country: None (occurrence: None)
  Receive Date: 20120823
  Receipt Date: 20120808
  Transmission Date: 20120928
  Serious: Yes (Other)
  Sender: FDA-Public Use
  Company Number: JP-MERCK-2012SP020549

PATIENT

DRUGS (24)
  1. RIBAVIRIN [Suspect]
     Dosage: 200 MG, QD
     Route: 048
     Dates: start: 20120314
  2. RIBAVIRIN [Suspect]
     Dosage: 600 MG, QD
     Route: 048
     Dates: start: 20120620, end: 20120625
  3. EPADEL [Concomitant]
     Indication: HYPERLIPIDAEMIA
     Dosage: FORMULATION POR
     Route: 048
  4. RIBAVIRIN [Suspect]
     Dosage: 400 MG, QD
     Route: 048
     Dates: start: 20120328, end: 20120403
  5. TELAVIC [Suspect]
     Indication: HEPATITIS C
     Dosage: 1500 MG, UNK
     Route: 048
     Dates: start: 20120207, end: 20120501
  6. SODIUM FERROUS CITRATE [Concomitant]
     Indication: IRON DEFICIENCY ANAEMIA
     Dosage: FORMULATION POR
     Route: 048
  7. ASPIRIN [Concomitant]
     Indication: MYOCARDIAL INFARCTION
     Dosage: FORMULATION POR
     Route: 048
  8. ACARBOSE [Concomitant]
     Indication: DIABETES MELLITUS
     Dosage: FORMULATION POR
     Route: 048
  9. RIBAVIRIN [Suspect]
     Indication: HEPATITIS C
     Dosage: 600 MG, QD
     Route: 048
     Dates: start: 20120207, end: 20120228
  10. RIBAVIRIN [Suspect]
     Dosage: 400 MG, QD
     Route: 048
     Dates: start: 20120229, end: 20120313
  11. RIBAVIRIN [Suspect]
     Dosage: 600 MG, QD
     Route: 048
     Dates: start: 20120404, end: 20120508
  12. RIBAVIRIN [Suspect]
     Dosage: 400 MG, QD
     Route: 048
     Dates: start: 20120626, end: 20120703
  13. CARVEDILOL [Concomitant]
     Indication: HYPERTENSION
     Dosage: UPDATE (31MAY2012) : FORMULATION : POR
     Route: 048
  14. SITAGLIPTIN PHOSPHATE [Concomitant]
     Indication: DIABETES MELLITUS
     Dosage: UPDATE (31MAY2012) : TRADE NAME : JANUVIA TABLETS
     Route: 048
     Dates: start: 20120321
  15. RIBAVIRIN [Suspect]
     Dosage: 200 MG, QD
     Route: 048
     Dates: start: 20120509, end: 20120522
  16. AMLODIPINE BESYLATE [Concomitant]
     Indication: HYPERTENSION
     Dosage: AMLODIPINE OD, FORMULATION POR
     Route: 048
  17. CARVEDILOL [Concomitant]
     Indication: CARDIAC FAILURE
     Dosage: FORMULATION POR
     Route: 048
  18. PEG-INTRON [Suspect]
     Indication: HEPATITIS C
     Dosage: 1.5 ?G/KG, QW
     Route: 058
     Dates: start: 20120207
  19. PEG-INTRON [Suspect]
     Dosage: 1.0 ?G/KG, QW
     Route: 058
     Dates: end: 20120703
  20. PREDONINE [Concomitant]
     Indication: RASH
     Dosage: UPDATE (31MAY2012)
     Route: 048
     Dates: start: 20120314
  21. CLARITIN REDITABS [Concomitant]
  22. DOGMATYL [Concomitant]
     Dosage: FORMULATION POR
     Route: 048
  23. RIBAVIRIN [Suspect]
     Dosage: 400 MG, QD
     Route: 048
     Dates: start: 20120523, end: 20120619
  24. LIVALO [Concomitant]
     Indication: HYPERLIPIDAEMIA
     Dosage: FORMULATION POR
     Route: 048

REACTIONS (1)
  - ANAEMIA [None]
